FAERS Safety Report 6113954-2 (Version None)
Quarter: 2009Q1

REPORT INFORMATION
  Report Type: 
  Country: None (occurrence: None)
  Receive Date: 20090312
  Receipt Date: 20090213
  Transmission Date: 20090719
  Serious: No
  Sender: FDA-Public Use
  Company Number: US-ABBOTT-09P-163-0558042-00

PATIENT
  Sex: Female

DRUGS (2)
  1. LUPRON DEPOT [Suspect]
     Indication: DRUG USE FOR UNKNOWN INDICATION
     Route: 050
     Dates: start: 20081201
  2. LUPRON DEPOT [Suspect]
     Dosage: PED DOSE
     Route: 050
     Dates: end: 20081101

REACTIONS (2)
  - DRUG INEFFECTIVE [None]
  - OVERDOSE [None]
